FAERS Safety Report 17956715 (Version 1)
Quarter: 2020Q2

REPORT INFORMATION
  Report Type: Spontaneous
  Country: US (occurrence: US)
  Receive Date: 20200628
  Receipt Date: 20200628
  Transmission Date: 20200714
  Serious: Yes (Life-Threatening, Disabling)
  Sender: FDA-Public Use
  Company Number: None

PATIENT
  Sex: Male
  Weight: 91.8 kg

DRUGS (2)
  1. PALIPERIDONE. [Suspect]
     Active Substance: PALIPERIDONE
     Indication: SCHIZOAFFECTIVE DISORDER
     Dosage: ?          QUANTITY:2 CAPSULE(S);?
     Route: 048
     Dates: start: 20070101, end: 20200626
  2. DIVALPROEX [Suspect]
     Active Substance: DIVALPROEX SODIUM

REACTIONS (8)
  - Heart rate increased [None]
  - Hypertension [None]
  - Lung disorder [None]
  - Vision blurred [None]
  - Dizziness [None]
  - Tremor [None]
  - Eye disorder [None]
  - Diarrhoea [None]
